FAERS Safety Report 9153725 (Version 1)
Quarter: 2013Q1

REPORT INFORMATION
  Report Type: Spontaneous
  Country: PT (occurrence: None)
  Receive Date: 20130205
  Receipt Date: 20130205
  Transmission Date: 20140127
  Serious: Yes (Other)
  Sender: FDA-Public Use
  Company Number: DSA_62227_2013

PATIENT
  Age: 42 Year
  Sex: Male

DRUGS (3)
  1. FLAGYL/00012501/(FLAGYL-METRONIDAZOLE) [Suspect]
     Indication: DIARRHOEA
     Route: 048
     Dates: start: 20130124, end: 20130128
  2. IMURAN [Concomitant]
  3. SALOFALK [Concomitant]

REACTIONS (3)
  - Insomnia [None]
  - Gait disturbance [None]
  - Dizziness [None]
